FAERS Safety Report 10555539 (Version 7)
Quarter: 2015Q2

REPORT INFORMATION
  Report Type: Spontaneous
  Country: US (occurrence: US)
  Receive Date: 20141030
  Receipt Date: 20150506
  Transmission Date: 20150821
  Serious: Yes (Hospitalization, Other)
  Sender: FDA-Public Use
  Company Number: US-PFIZER INC-2014297442

PATIENT
  Age: 33 Year
  Sex: Female
  Weight: 122 kg

DRUGS (28)
  1. SOMAVERT [Suspect]
     Active Substance: PEGVISOMANT
     Dosage: 20 MG, 2X/DAY
     Route: 058
     Dates: start: 2014, end: 201409
  2. CORTEF [Concomitant]
     Active Substance: HYDROCORTISONE
     Dosage: UNK (TAKE TWO TABLETS 10MG IN THE MORNING AND 1 TABLET IN THE AFTERNOON, 5MG)
  3. ZESTRIL [Concomitant]
     Active Substance: LISINOPRIL
     Dosage: 20 MG, DAILY
     Route: 048
     Dates: start: 20120801
  4. SOMAVERT [Suspect]
     Active Substance: PEGVISOMANT
     Indication: ACROMEGALY
     Dosage: 20 MG, 2X/DAY
     Route: 058
     Dates: start: 1995
  5. SOMAVERT [Suspect]
     Active Substance: PEGVISOMANT
     Dosage: 40 MG, DAILY
     Route: 058
     Dates: end: 201411
  6. FLUOXETINE [Concomitant]
     Active Substance: FLUOXETINE\FLUOXETINE HYDROCHLORIDE
     Dosage: UNK
  7. MOTRIN [Concomitant]
     Active Substance: IBUPROFEN
     Dosage: 800 MG, AS NEEDED (TAKE 800 MG BY MOUTH EVERY EIGHT HOURS AS NEEDED)
     Route: 048
  8. LANTUS [Concomitant]
     Active Substance: INSULIN GLARGINE
     Dosage: 40 IU, 3X/DAY
     Dates: start: 201410
  9. SIMVASTATIN. [Concomitant]
     Active Substance: SIMVASTATIN
  10. TENORMIN [Concomitant]
     Active Substance: ATENOLOL
     Dosage: 25 MG, 1X/DAY
     Route: 048
  11. METFORMIN [Concomitant]
     Active Substance: METFORMIN HYDROCHLORIDE
     Dosage: 1000 MG, 2X/DAY
  12. LANTUS [Concomitant]
     Active Substance: INSULIN GLARGINE
     Dosage: 40 IU, 2X/DAY
     Dates: start: 2014
  13. LANTUS [Concomitant]
     Active Substance: INSULIN GLARGINE
     Dosage: 60 IU, 2X/DAY
  14. CALCIUM CARBONATE/VITAMIN D3 [Concomitant]
     Dosage: 5000 MG, 2X/DAY
  15. ZOCOR [Concomitant]
     Active Substance: SIMVASTATIN
     Dosage: 40 MG, DAILY
     Route: 048
     Dates: start: 20120801
  16. SOMAVERT [Suspect]
     Active Substance: PEGVISOMANT
     Dosage: 40 MG, DAILY
     Route: 058
     Dates: start: 201405, end: 201409
  17. ATENOLOL. [Concomitant]
     Active Substance: ATENOLOL
     Dosage: UNK
  18. ROXICODONE [Concomitant]
     Active Substance: OXYCODONE HYDROCHLORIDE
     Dosage: UNK (TAKE 1-2 TABLETS BY MOUTH EVERY FOUR HOURS AS NEEDED)
     Route: 048
     Dates: start: 20140921
  19. ZANTAC [Concomitant]
     Active Substance: RANITIDINE HYDROCHLORIDE
     Dosage: 150 MG, 2X/DAY
     Route: 048
     Dates: start: 20140921
  20. OCEAN NASAL [Concomitant]
     Dosage: UNK (PLACE 2 SPRAYS IN EACH NOSTRIL EVERY HOUR)
     Route: 045
     Dates: start: 20140921
  21. PROZAC [Concomitant]
     Active Substance: FLUOXETINE HYDROCHLORIDE
     Dosage: 20 MG, DAILY
     Route: 048
     Dates: start: 20120613
  22. MULTIVITAMINS W/MINERALS [Concomitant]
     Dosage: UNK
     Route: 048
     Dates: start: 20120613
  23. PREMPRO [Concomitant]
     Active Substance: ESTROGENS, CONJUGATED\MEDROXYPROGESTERONE ACETATE
     Dosage: 0.625 MG, 1X/DAY
     Route: 048
     Dates: start: 20131120
  24. SYNTHROID [Concomitant]
     Active Substance: LEVOTHYROXINE SODIUM
     Dosage: 125 ?G, DAILY
     Dates: start: 20120613
  25. AUGMENTIN [Concomitant]
     Active Substance: AMOXICILLIN\CLAVULANATE POTASSIUM
     Indication: ANTIBIOTIC PROPHYLAXIS
     Dosage: UNK, 2X/DAY (250-125MG, 1 TABLET BY MOUTH EVERY TWELVE HOURS)
     Route: 048
     Dates: start: 20140921
  26. SOMAVERT [Suspect]
     Active Substance: PEGVISOMANT
     Indication: BLOOD GROWTH HORMONE INCREASED
     Dosage: 20 MG, 2X/DAY
     Route: 058
     Dates: start: 1985
  27. MIRALAX [Concomitant]
     Active Substance: POLYETHYLENE GLYCOL 3350
     Indication: CONSTIPATION
     Dosage: 17 G, AS NEEDED
     Dates: start: 20140921
  28. GLUCOPHAGE XR [Concomitant]
     Active Substance: METFORMIN HYDROCHLORIDE
     Dosage: 1000 MG, DAILY
     Route: 048
     Dates: start: 20130821, end: 20140821

REACTIONS (2)
  - Drug ineffective [Unknown]
  - Pituitary tumour benign [Recovering/Resolving]

NARRATIVE: CASE EVENT DATE: 1995
